FAERS Safety Report 9412387 (Version 1)
Quarter: 2013Q2

REPORT INFORMATION
  Report Type: Spontaneous
  Country: US (occurrence: None)
  Receive Date: 20130419
  Receipt Date: 20130419
  Transmission Date: 20140414
  Serious: Yes (Other)
  Sender: FDA-Public Use
  Company Number: 54973 SAE031

PATIENT
  Age: 61 Year
  Sex: Female

DRUGS (3)
  1. HYLAND^S BIOPLASMA [Suspect]
     Dosage: 3X DAY X 1 DAY.
  2. HYLAND^S ARNICA MONTANA 30X [Suspect]
     Indication: CONTUSION
     Dosage: 4X DAY X 1 DAY.
  3. HYLAND^S ARNICA MONTANA 30X [Suspect]
     Indication: SWELLING
     Dosage: 4X DAY X 1 DAY.

REACTIONS (1)
  - Blood urine present [None]
